FAERS Safety Report 9303057 (Version 2)
Quarter: 2013Q2

REPORT INFORMATION
  Report Type: Spontaneous
  Country: AT (occurrence: AT)
  Receive Date: 20130522
  Receipt Date: 20130524
  Transmission Date: 20140414
  Serious: Yes (Other)
  Sender: FDA-Public Use
  Company Number: AT-ROCHE-1221482

PATIENT
  Sex: Female

DRUGS (6)
  1. RIVOTRIL [Suspect]
     Indication: EPILEPSY
     Route: 065
     Dates: start: 20130504
  2. EUTHYROX [Concomitant]
     Route: 065
  3. KEPPRA [Concomitant]
     Indication: EPILEPSY
     Route: 065
  4. KEPPRA [Concomitant]
     Dosage: OR 2000 MG/DAY
     Route: 065
  5. VIMPAT [Concomitant]
     Indication: EPILEPSY
     Route: 065
  6. VIMPAT [Concomitant]
     Route: 065

REACTIONS (8)
  - Convulsion [Unknown]
  - General physical health deterioration [Recovering/Resolving]
  - Chills [Recovering/Resolving]
  - Lethargy [Recovering/Resolving]
  - Fatigue [Recovering/Resolving]
  - Memory impairment [Recovering/Resolving]
  - Drug intolerance [Not Recovered/Not Resolved]
  - Sedation [Unknown]
